FAERS Safety Report 10761240 (Version 1)
Quarter: 2015Q1

REPORT INFORMATION
  Report Type: Spontaneous
  Country: US (occurrence: None)
  Receive Date: 20150203
  Receipt Date: 20150203
  Transmission Date: 20150721
  Serious: Yes (Other)
  Sender: FDA-Public Use
  Company Number: None

PATIENT
  Age: 53 Year
  Sex: Female
  Weight: 65.77 kg

DRUGS (1)
  1. RIBASPHERE [Suspect]
     Active Substance: RIBAVIRIN
     Indication: HEPATITIS C
     Dosage: STRENGTH: 200MG, DOSE FORM: ORAL, ROUTE: ORAL 047, FREQUENCY: 2QAM/3QPM?
     Route: 048
     Dates: start: 20150122

REACTIONS (5)
  - Rash [None]
  - Nausea [None]
  - Vomiting [None]
  - Blindness [None]
  - Pruritus generalised [None]

NARRATIVE: CASE EVENT DATE: 20150202
